FAERS Safety Report 19131180 (Version 1)
Quarter: 2021Q2

REPORT INFORMATION
  Report Type: Other
  Country: US (occurrence: US)
  Receive Date: 20210414
  Receipt Date: 20210414
  Transmission Date: 20210717
  Serious: Yes (Other)
  Sender: FDA-Public Use
  Company Number: US-ROCHE-2805514

PATIENT
  Sex: Male

DRUGS (1)
  1. OCREVUS [Suspect]
     Active Substance: OCRELIZUMAB
     Indication: PRIMARY PROGRESSIVE MULTIPLE SCLEROSIS
     Dosage: ONGOING: YES, DATE OF TREATMENT: 24?JUL?2020, 04?DEC?2019, 04?JUN?2019, 19?NOV?2018, 04?DEC?2018
     Route: 042
     Dates: start: 20181120

REACTIONS (1)
  - Multiple sclerosis relapse [Recovered/Resolved]
